FAERS Safety Report 4737262-7 (Version None)
Quarter: 2005Q3

REPORT INFORMATION
  Report Type: 
  Country: None (occurrence: None)
  Receive Date: 20050808
  Receipt Date: 20050802
  Transmission Date: 20060218
  Serious: Yes (Life-Threatening, Hospitalization)
  Sender: FDA-Public Use
  Company Number: PHEH2005US08665

PATIENT
  Age: 60 Year
  Sex: Female

DRUGS (6)
  1. ZELNORM [Suspect]
     Indication: IRRITABLE BOWEL SYNDROME
     Dosage: 6 MG, BID
     Route: 048
     Dates: start: 20040913, end: 20040927
  2. DIOVAN [Concomitant]
     Dosage: 160 MG, QD
     Route: 048
  3. AMLODIPINE BESYLATE [Concomitant]
     Dosage: 5 MG, QD
     Route: 048
  4. SYNTHROID [Concomitant]
     Dosage: 0.1 MG, QD
     Route: 048
  5. COPAXONE [Concomitant]
     Dosage: 20 MG, QD
     Route: 058
  6. ATIVAN [Concomitant]
     Dosage: 0.5 MG, PRN

REACTIONS (6)
  - ABDOMINAL PAIN [None]
  - COLECTOMY [None]
  - CONSTIPATION [None]
  - DIVERTICULITIS [None]
  - LARGE INTESTINE PERFORATION [None]
  - PYREXIA [None]
